FAERS Safety Report 5696378-1 (Version None)
Quarter: 2008Q2

REPORT INFORMATION
  Report Type: 
  Country: None (occurrence: None)
  Receive Date: 20080408
  Receipt Date: 20080328
  Transmission Date: 20081010
  Serious: Yes (Other)
  Sender: FDA-Public Use
  Company Number: US-PFIZER INC-2008028374

PATIENT
  Sex: Male
  Weight: 67.6 kg

DRUGS (7)
  1. XALATAN [Suspect]
     Indication: GLAUCOMA
  2. MULTIVITAMINS WITH MINERALS [Concomitant]
  3. AMINO ACIDS [Concomitant]
  4. SOY LECITHIN/WHEY PROTEINS [Concomitant]
  5. ZINC [Concomitant]
  6. LUTEIN [Concomitant]
  7. ZEAXANTHIN [Concomitant]

REACTIONS (2)
  - DRUG ADMINISTRATION ERROR [None]
  - INTRAOCULAR PRESSURE INCREASED [None]
